FAERS Safety Report 4519134-6 (Version None)
Quarter: 2004Q4

REPORT INFORMATION
  Report Type: 
  Country: None (occurrence: None)
  Receive Date: 20041206
  Receipt Date: 20041122
  Transmission Date: 20050328
  Serious: Yes (Death, Other)
  Sender: FDA-Public Use
  Company Number: US-JNJFOC-20041006093

PATIENT
  Sex: Male
  Weight: 72 kg

DRUGS (41)
  1. NATRECOR [Suspect]
     Dosage: CONTINUOUS INFUSION
     Route: 042
  2. NATRECOR [Suspect]
     Dosage: CONTINUOUS INFUSION
     Route: 042
  3. NATRECOR [Suspect]
     Dosage: BOLUS
     Route: 042
  4. SPIRONOLACTONE [Concomitant]
     Route: 049
  5. ALLOPURINOL [Concomitant]
     Route: 049
  6. SIMVASTATIN [Concomitant]
     Route: 049
  7. ISOSORBIDE DINITRATE [Concomitant]
     Indication: ANGINA PECTORIS
     Route: 049
  8. HYDROXYUREA [Concomitant]
     Route: 049
  9. HYDROXYUREA [Concomitant]
     Route: 049
  10. CARVEDILOL [Concomitant]
     Indication: HYPERTENSION
     Route: 049
  11. CARVEDILOL [Concomitant]
     Route: 049
  12. GLIPIZIDE [Concomitant]
     Indication: DIABETES MELLITUS
     Route: 049
  13. ROSIGLITAZONE MALEATE [Concomitant]
     Indication: DIABETES MELLITUS
     Route: 049
  14. OMEPRAZOLE [Concomitant]
     Route: 049
  15. AMIODARONE [Concomitant]
     Route: 049
  16. PANTOPRAZOLE [Concomitant]
     Route: 049
  17. DIPHENHYDRAMINE [Concomitant]
     Route: 049
  18. ACETAMINOPHEN [Concomitant]
     Dosage: 500-1000 MG
     Route: 049
  19. ACETAMINOPHEN [Concomitant]
     Route: 049
  20. RED BLOOD CELLS [Concomitant]
     Dosage: 2 UNITS
     Route: 042
  21. RED BLOOD CELLS [Concomitant]
     Dosage: 2 UNITS
     Route: 042
  22. DOCUSATE CALCIUM [Concomitant]
     Route: 049
  23. LEVOFLOXACIN [Concomitant]
     Route: 049
  24. ZOLPIDEM [Concomitant]
     Indication: INSOMNIA
     Route: 049
  25. MORPHINE SULFATE [Concomitant]
     Route: 042
  26. MORPHINE SULFATE [Concomitant]
     Dosage: 2-6 MG
     Route: 042
  27. ENALAPRIL [Concomitant]
     Route: 049
  28. EPOGEN [Concomitant]
     Dosage: 3000 UNITS
     Route: 042
  29. EPOGEN [Concomitant]
     Dosage: 3000 UNITS
     Route: 042
  30. EPOGEN [Concomitant]
     Dosage: 4000 UNITS
     Route: 042
  31. EPOGEN [Concomitant]
     Dosage: 3000 UNITS
     Route: 042
  32. PLATELETS [Concomitant]
     Dosage: 1 UNIT
     Route: 042
  33. ALBUMIN (HUMAN) [Concomitant]
  34. LORAZEPAM [Concomitant]
     Indication: PALLIATIVE CARE
     Route: 042
  35. ATROPINE [Concomitant]
     Indication: PALLIATIVE CARE
     Dosage: ATROPINE 1% DROPS, 2 DROPS
     Route: 049
  36. OXYGEN [Concomitant]
     Dosage: 1-3 L/MIN
     Route: 050
  37. INSULIN [Concomitant]
     Indication: DIABETES MELLITUS
     Dosage: 3-18 UNITS
     Route: 058
  38. FUROSEMIDE [Concomitant]
     Dosage: ORAL
     Route: 049
  39. FUROSEMIDE [Concomitant]
     Route: 042
  40. FUROSEMIDE [Concomitant]
     Route: 042
  41. FUROSEMIDE [Concomitant]
     Route: 042

REACTIONS (10)
  - ACUTE MYELOID LEUKAEMIA [None]
  - CARDIAC FAILURE CONGESTIVE [None]
  - CARDIO-RESPIRATORY ARREST [None]
  - CORONARY ARTERY DISEASE [None]
  - HAEMODIALYSIS [None]
  - HYPOTENSION [None]
  - OVERDOSE [None]
  - PLEURAL EFFUSION [None]
  - RENAL FAILURE [None]
  - WEIGHT INCREASED [None]
